APPROVED DRUG PRODUCT: PIRMELLA 7/7/7
Active Ingredient: ETHINYL ESTRADIOL; NORETHINDRONE
Strength: 0.035MG,0.035MG,0.035MG;0.5MG,0.75MG,1MG
Dosage Form/Route: TABLET;ORAL-28
Application: A201510 | Product #001
Applicant: LUPIN LTD
Approved: Apr 24, 2013 | RLD: No | RS: No | Type: DISCN